FAERS Safety Report 19207233 (Version 3)
Quarter: 2022Q1

REPORT INFORMATION
  Report Type: Spontaneous
  Country: US (occurrence: None)
  Receive Date: 20210501
  Receipt Date: 20220224
  Transmission Date: 20220423
  Serious: Yes (Other)
  Sender: FDA-Public Use
  Company Number: 2021A348637

PATIENT
  Age: 21408 Day
  Sex: Female

DRUGS (29)
  1. NEXIUM [Suspect]
     Active Substance: ESOMEPRAZOLE MAGNESIUM
     Indication: Gastrooesophageal reflux disease
     Route: 048
     Dates: start: 2005, end: 2019
  2. NEXIUM [Suspect]
     Active Substance: ESOMEPRAZOLE MAGNESIUM
     Indication: Gastrooesophageal reflux disease
     Route: 048
     Dates: start: 200703, end: 201603
  3. PRILOSEC [Suspect]
     Active Substance: OMEPRAZOLE MAGNESIUM
     Indication: Gastrooesophageal reflux disease
     Route: 048
     Dates: start: 2005, end: 2019
  4. PRILOSEC [Suspect]
     Active Substance: OMEPRAZOLE MAGNESIUM
     Indication: Gastrooesophageal reflux disease
     Dosage: 40.0MG UNKNOWN
     Route: 048
     Dates: start: 200504
  5. PROTONIX [Suspect]
     Active Substance: PANTOPRAZOLE SODIUM
     Indication: Gastrooesophageal reflux disease
     Route: 065
     Dates: start: 2005, end: 2019
  6. PROTONIX [Suspect]
     Active Substance: PANTOPRAZOLE SODIUM
     Indication: Gastrooesophageal reflux disease
     Dosage: 40.0MG UNKNOWN
     Route: 065
     Dates: start: 200501, end: 200703
  7. FUROSEMIDE [Concomitant]
     Active Substance: FUROSEMIDE
  8. ACETAMINOPHEN\HYDROCODONE BITARTRATE [Concomitant]
     Active Substance: ACETAMINOPHEN\HYDROCODONE BITARTRATE
  9. CEPHALEXIN [Concomitant]
     Active Substance: CEPHALEXIN
  10. LACTULOSE [Concomitant]
     Active Substance: LACTULOSE
  11. ALLOPURINOL [Concomitant]
     Active Substance: ALLOPURINOL
  12. AMITIZA [Concomitant]
     Active Substance: LUBIPROSTONE
  13. TOPAMAX [Concomitant]
     Active Substance: TOPIRAMATE
  14. AZITHROMYCIN [Concomitant]
     Active Substance: AZITHROMYCIN
  15. ONDANSETRON [Concomitant]
     Active Substance: ONDANSETRON
  16. PROMETHAZINE [Concomitant]
     Active Substance: PROMETHAZINE HYDROCHLORIDE
  17. LAMOTRIGINE [Concomitant]
     Active Substance: LAMOTRIGINE
  18. LEVOTHYROXINE [Concomitant]
     Active Substance: LEVOTHYROXINE
  19. DIAZEPAM [Concomitant]
     Active Substance: DIAZEPAM
  20. VOLTAREN [Concomitant]
     Active Substance: DICLOFENAC SODIUM
  21. HALOPERIDOL [Concomitant]
     Active Substance: HALOPERIDOL
  22. IBUPROFEN [Concomitant]
     Active Substance: IBUPROFEN
  23. GABAPENTIN [Concomitant]
     Active Substance: GABAPENTIN
  24. INDOMETHACIN [Concomitant]
     Active Substance: INDOMETHACIN
  25. TRAMADOL [Concomitant]
     Active Substance: TRAMADOL
  26. PROVENTIL [Concomitant]
     Active Substance: ALBUTEROL
  27. METHYLPREDNISOLONE [Concomitant]
     Active Substance: METHYLPREDNISOLONE
  28. CYCLOBENZAPRINE [Concomitant]
     Active Substance: CYCLOBENZAPRINE
  29. SPIRONOLACTONE [Concomitant]
     Active Substance: SPIRONOLACTONE

REACTIONS (2)
  - Chronic kidney disease [Not Recovered/Not Resolved]
  - Acute kidney injury [Unknown]

NARRATIVE: CASE EVENT DATE: 20160329
